FAERS Safety Report 15225044 (Version 1)
Quarter: 2018Q3

REPORT INFORMATION
  Report Type: Spontaneous
  Country: DE (occurrence: DE)
  Receive Date: 20180801
  Receipt Date: 20180801
  Transmission Date: 20181010
  Serious: Yes (Life-Threatening, Other)
  Sender: FDA-Public Use
  Company Number: DE-MACLEODS PHARMACEUTICALS US LTD-MAC2018015716

PATIENT

DRUGS (4)
  1. QUETIAPINE 50 MG [Suspect]
     Active Substance: QUETIAPINE
     Indication: AGITATION
     Dosage: 50 MILLIGRAM, QD
     Route: 065
  2. PREGABALIN. [Concomitant]
     Active Substance: PREGABALIN
     Indication: PRODUCT USED FOR UNKNOWN INDICATION
     Dosage: 900 MILLIGRAM, QD, DOSE:SLOWLY REDUCED OVER 19 DAYS
     Route: 065
  3. QUETIAPINE 50 MG [Suspect]
     Active Substance: QUETIAPINE
     Dosage: 150 MILLIGRAM, QD
     Route: 065
  4. QUETIAPINE 50 MG [Suspect]
     Active Substance: QUETIAPINE
     Indication: RESTLESSNESS
     Dosage: 75 MILLIGRAM, QD
     Route: 065

REACTIONS (2)
  - Blood creatine phosphokinase increased [Recovered/Resolved]
  - Myalgia [Recovered/Resolved]
